FAERS Safety Report 5854140-0 (Version None)
Quarter: 2008Q3

REPORT INFORMATION
  Report Type: 
  Country: None (occurrence: None)
  Receive Date: 20080822
  Receipt Date: 20080814
  Transmission Date: 20090109
  Serious: Yes (Hospitalization, Disabling)
  Sender: FDA-Public Use
  Company Number: US-SANOFI-SYNTHELABO-A03200803265

PATIENT
  Age: 54 Year
  Sex: Female

DRUGS (2)
  1. AMBIEN [Suspect]
     Indication: INSOMNIA
     Dosage: UNK
     Route: 048
     Dates: start: 20050101
  2. AMBIEN [Suspect]
     Dosage: HALVED THE PILL, TAKING 5 MG (HALF OF 10 MG TABLET)
     Route: 048

REACTIONS (9)
  - ARTHRITIS [None]
  - CONFUSIONAL STATE [None]
  - FALL [None]
  - INTENTIONAL DRUG MISUSE [None]
  - LUMBAR VERTEBRAL FRACTURE [None]
  - PELVIC FRACTURE [None]
  - PNEUMOTHORAX [None]
  - RIB FRACTURE [None]
  - SOMNAMBULISM [None]
